FAERS Safety Report 4681104-5 (Version None)
Quarter: 2005Q2

REPORT INFORMATION
  Report Type: 
  Country: None (occurrence: None)
  Receive Date: 20050603
  Receipt Date: 20050524
  Transmission Date: 20051028
  Serious: Yes (Other)
  Sender: FDA-Public Use
  Company Number: JP-MERCK-0505USA03427

PATIENT
  Age: 58 Year
  Sex: Male

DRUGS (2)
  1. PEPCID [Suspect]
     Route: 051
     Dates: start: 19960301
  2. SOSEGON [Concomitant]
     Route: 051
     Dates: start: 19960301

REACTIONS (1)
  - RENAL IMPAIRMENT [None]
